FAERS Safety Report 7960717-9 (Version None)
Quarter: 2011Q4

REPORT INFORMATION
  Report Type: 
  Country: None (occurrence: None)
  Receive Date: 20111206
  Receipt Date: 20051116
  Transmission Date: 20120403
  Serious: Yes (Other)
  Sender: FDA-Public Use
  Company Number: PHHY2005MX006996

PATIENT
  Age: 39 Year
  Sex: Female

DRUGS (2)
  1. DICLOFENAC [Concomitant]
     Dosage: 2 TABLETS EVERY DAY
     Route: 048
     Dates: start: 20051115
  2. LAMISIL [Suspect]
     Indication: ONYCHOMYCOSIS
     Dosage: 250 MG, QD
     Route: 048
     Dates: start: 20051004

REACTIONS (3)
  - LIGAMENT SPRAIN [None]
  - MUSCLE STRAIN [None]
  - ROAD TRAFFIC ACCIDENT [None]
